FAERS Safety Report 17860053 (Version 1)
Quarter: 2020Q2

REPORT INFORMATION
  Report Type: Spontaneous
  Country: US (occurrence: US)
  Receive Date: 20200604
  Receipt Date: 20200604
  Transmission Date: 20200714
  Serious: Yes (Other)
  Sender: FDA-Public Use
  Company Number: None

PATIENT
  Age: 78 Year
  Sex: Female
  Weight: 81 kg

DRUGS (13)
  1. IODINE. [Concomitant]
     Active Substance: IODINE
  2. VIT D [Concomitant]
     Active Substance: VITAMIN D NOS
  3. MAGNESIUM [Concomitant]
     Active Substance: MAGNESIUM
  4. ZINC. [Concomitant]
     Active Substance: ZINC
  5. FISH OIL [Concomitant]
     Active Substance: FISH OIL
  6. FLAXSEED [Concomitant]
     Active Substance: FLAX SEED
  7. LEVOXYL [Suspect]
     Active Substance: LEVOTHYROXINE SODIUM
     Indication: HYPOTHYROIDISM
     Dosage: ?          QUANTITY:1 TABLET(S);?
     Route: 048
     Dates: start: 20200522, end: 20200604
  8. METHYL B-12 [Concomitant]
  9. METHYL FOLATE [Concomitant]
     Active Substance: LEVOMEFOLATE CALCIUM
  10. CALCIUM [Concomitant]
     Active Substance: CALCIUM
  11. SUNFLOWER LECITHIN (PHOSPHATIDYL CHOLINE) [Concomitant]
  12. VITAMIN C [Concomitant]
     Active Substance: ASCORBIC ACID
  13. ACCU FLORA [Concomitant]

REACTIONS (2)
  - Hypersensitivity [None]
  - Fatigue [None]

NARRATIVE: CASE EVENT DATE: 20200604
